FAERS Safety Report 10809863 (Version 1)
Quarter: 2015Q1

REPORT INFORMATION
  Report Type: Report from Study
  Country: US (occurrence: US)
  Receive Date: 20150217
  Receipt Date: 20150217
  Transmission Date: 20150721
  Serious: No
  Sender: FDA-Public Use
  Company Number: US-ABBVIE-14K-163-1267802-00

PATIENT
  Age: 42 Year
  Sex: Female

DRUGS (3)
  1. HUMIRA [Suspect]
     Active Substance: ADALIMUMAB
     Dosage: LOADING DOSE
     Dates: start: 20140711, end: 20140711
  2. HUMIRA [Suspect]
     Active Substance: ADALIMUMAB
     Dates: start: 20140805
  3. HUMIRA [Suspect]
     Active Substance: ADALIMUMAB
     Indication: CROHN^S DISEASE
     Dosage: LOADING DOSE
     Dates: start: 20140627, end: 20140627

REACTIONS (4)
  - Inappropriate schedule of drug administration [Not Recovered/Not Resolved]
  - Incorrect dose administered [Unknown]
  - Anxiety [Unknown]
  - Injection site pain [Unknown]

NARRATIVE: CASE EVENT DATE: 20140725
